FAERS Safety Report 7075010-9 (Version None)
Quarter: 2010Q4

REPORT INFORMATION
  Report Type: 
  Country: None (occurrence: None)
  Receive Date: 20101029
  Receipt Date: 20091221
  Transmission Date: 20110411
  Serious: No
  Sender: FDA-Public Use
  Company Number: US-WYE-H12763309

PATIENT
  Age: 74 Year
  Sex: Female
  Weight: 53.57 kg

DRUGS (5)
  1. ALAVERT [Suspect]
     Indication: NASAL CONGESTION
     Route: 048
     Dates: start: 20091201, end: 20091201
  2. ALAVERT [Suspect]
     Indication: PARANASAL SINUS HYPERSECRETION
  3. ALAVERT [Suspect]
     Indication: SNEEZING
  4. PREMARIN [Concomitant]
  5. ACTONEL [Concomitant]

REACTIONS (1)
  - DRUG INEFFECTIVE [None]
